FAERS Safety Report 4759468-3 (Version None)
Quarter: 2005Q3

REPORT INFORMATION
  Report Type: 
  Country: None (occurrence: None)
  Receive Date: 20050831
  Receipt Date: 20050812
  Transmission Date: 20060218
  Serious: Yes (Other)
  Sender: FDA-Public Use
  Company Number: 2005BH001142

PATIENT
  Age: 67 Year
  Sex: Female

DRUGS (1)
  1. LACTATED RINGER'S IN PLASTIC CONTAINER [Suspect]
     Indication: DRUG USE FOR UNKNOWN INDICATION
     Dosage: 150 ML; IV
     Route: 042

REACTIONS (3)
  - HYPOAESTHESIA ORAL [None]
  - PARAESTHESIA ORAL [None]
  - RASH MACULAR [None]
